FAERS Safety Report 12192605 (Version 1)
Quarter: 2016Q1

REPORT INFORMATION
  Report Type: Spontaneous
  Country: US (occurrence: US)
  Receive Date: 20160318
  Receipt Date: 20160318
  Transmission Date: 20160526
  Serious: Yes (Other)
  Sender: FDA-Public Use
  Company Number: US-PFIZER INC-2016156362

PATIENT
  Age: 59 Year
  Sex: Female
  Weight: 111.11 kg

DRUGS (1)
  1. GABAPENTIN. [Suspect]
     Active Substance: GABAPENTIN
     Indication: NEURALGIA
     Dosage: 600 MG, 1X/DAY
     Route: 048
     Dates: start: 201510, end: 2015

REACTIONS (6)
  - Confusional state [Unknown]
  - Fear [Unknown]
  - Product use issue [Unknown]
  - Blindness [Unknown]
  - Suicidal ideation [Recovered/Resolved]
  - Feeling abnormal [Unknown]

NARRATIVE: CASE EVENT DATE: 2015
